FAERS Safety Report 14615731 (Version 1)
Quarter: 2018Q1

REPORT INFORMATION
  Report Type: Spontaneous
  Country: US (occurrence: US)
  Receive Date: 20180309
  Receipt Date: 20180309
  Transmission Date: 20180509
  Serious: Yes (Hospitalization, Other)
  Sender: FDA-Public Use
  Company Number: US-ZYDUS-019212

PATIENT
  Age: 56 Year
  Sex: Female

DRUGS (10)
  1. DIAZEPAM. [Concomitant]
     Active Substance: DIAZEPAM
     Indication: ANXIETY
     Route: 048
  2. ACETYLSALICYLIC ACID [Suspect]
     Active Substance: ASPIRIN
     Indication: PROPHYLAXIS
     Route: 048
  3. HYDROCHLOROTHIAZIDE. [Suspect]
     Active Substance: HYDROCHLOROTHIAZIDE
     Indication: HYPERTENSION
     Route: 048
  4. METOPROLOL. [Concomitant]
     Active Substance: METOPROLOL
     Indication: HYPERTENSION
     Route: 048
  5. GARCINIA GUMMI-GUTTA EXTRACT [Suspect]
     Active Substance: DIETARY SUPPLEMENT
     Indication: WEIGHT INCREASED
     Route: 048
  6. METHADONE/METHADONE HYDROCHLORIDE [Concomitant]
     Indication: DRUG ABUSE
     Route: 048
  7. LISINOPRIL. [Suspect]
     Active Substance: LISINOPRIL
     Indication: HYPERTENSION
     Route: 048
  8. METFORMIN [Suspect]
     Active Substance: METFORMIN HYDROCHLORIDE
     Indication: DIABETES MELLITUS
     Route: 048
  9. ATORVASTATIN [Suspect]
     Active Substance: ATORVASTATIN
     Indication: HYPERLIPIDAEMIA
     Route: 048
  10. INSULIN GLARGINE [Concomitant]
     Active Substance: INSULIN GLARGINE
     Indication: DIABETES MELLITUS
     Dosage: 75 U
     Route: 058

REACTIONS (12)
  - Abdominal pain [Recovered/Resolved]
  - Lethargy [Recovered/Resolved]
  - Atrial fibrillation [Recovered/Resolved]
  - Left ventricular dysfunction [Recovered/Resolved]
  - Stress cardiomyopathy [Recovered/Resolved]
  - Troponin I increased [Recovered/Resolved]
  - Mental disorder [Recovered/Resolved]
  - Confusional state [Recovered/Resolved]
  - Vomiting [Recovered/Resolved]
  - Diabetic ketoacidosis [Recovered/Resolved]
  - Pancreatitis [Recovered/Resolved]
  - Pancreatic atrophy [Recovered/Resolved]
